FAERS Safety Report 9817744 (Version 1)
Quarter: 2014Q1

REPORT INFORMATION
  Report Type: Spontaneous
  Country: US (occurrence: None)
  Receive Date: 20140110
  Receipt Date: 20140110
  Transmission Date: 20141002
  Serious: Yes (Hospitalization)
  Sender: FDA-Public Use
  Company Number: None

PATIENT
  Age: 69 Year
  Sex: Female
  Weight: 70.3 kg

DRUGS (1)
  1. CETUXIMAB (ERBITUX) (714692) [Suspect]

REACTIONS (5)
  - Pneumonia aspiration [None]
  - Tachypnoea [None]
  - Dyspnoea exertional [None]
  - Cough [None]
  - Oral pain [None]
